FAERS Safety Report 9463832 (Version 1)
Quarter: 2013Q3

REPORT INFORMATION
  Report Type: Spontaneous
  Country: BR (occurrence: BR)
  Receive Date: 20130819
  Receipt Date: 20130819
  Transmission Date: 20140515
  Serious: Yes (Other)
  Sender: FDA-Public Use
  Company Number: BR-PFIZER INC-2013238457

PATIENT
  Age: 35 Year
  Sex: Female

DRUGS (1)
  1. DOSTINEX [Suspect]
     Indication: SUPPRESSED LACTATION
     Dosage: 2 TABLETS AT ONCE
     Route: 048
     Dates: start: 201306

REACTIONS (4)
  - Angiopathy [Unknown]
  - Hypersensitivity [Unknown]
  - Hormone level abnormal [Unknown]
  - Migraine [Not Recovered/Not Resolved]
